FAERS Safety Report 18322712 (Version 1)
Quarter: 2020Q3

REPORT INFORMATION
  Report Type: Spontaneous
  Country: US (occurrence: US)
  Receive Date: 20200929
  Receipt Date: 20200929
  Transmission Date: 20201103
  Serious: No
  Sender: FDA-Public Use
  Company Number: US-TEVA-2020-US-1833177

PATIENT
  Age: 72 Year
  Sex: Female

DRUGS (1)
  1. ESTRADIOL TEVA [Suspect]
     Active Substance: ESTRADIOL
     Dosage: START DATE: HAS BEEN ON THIS MEDICATION FOR 32 YEARS
     Route: 065

REACTIONS (4)
  - Hyperhidrosis [Unknown]
  - Hot flush [Unknown]
  - Irritability [Unknown]
  - Anger [Unknown]
